FAERS Safety Report 26147366 (Version 1)
Quarter: 2025Q4

REPORT INFORMATION
  Report Type: Spontaneous
  Country: US (occurrence: US)
  Receive Date: 20251211
  Receipt Date: 20251211
  Transmission Date: 20260117
  Serious: Yes (Hospitalization, Other)
  Sender: BRISTOL-MYERS SQUIBB COMPANY
  Company Number: US-BRISTOL-MYERS SQUIBB COMPANY-2025-164702

PATIENT
  Age: 73 Year
  Sex: Female

DRUGS (1)
  1. IDHIFA [Suspect]
     Active Substance: ENASIDENIB MESYLATE
     Indication: Acute myeloid leukaemia
     Route: 048
     Dates: start: 20251121

REACTIONS (11)
  - Confusional state [Unknown]
  - Product dose omission in error [Unknown]
  - Blood glucose increased [Unknown]
  - Swelling [Unknown]
  - Diarrhoea [Unknown]
  - Nausea [Unknown]
  - Taste disorder [Unknown]
  - Vomiting [Unknown]
  - Full blood count decreased [Unknown]
  - Dyspnoea [Unknown]
  - Weight increased [Unknown]
